FAERS Safety Report 5684725-6 (Version None)
Quarter: 2008Q1

REPORT INFORMATION
  Report Type: 
  Country: None (occurrence: None)
  Receive Date: 20080328
  Receipt Date: 20070831
  Transmission Date: 20080703
  Serious: Yes (Hospitalization)
  Sender: FDA-Public Use
  Company Number: US-BRISTOL-MYERS SQUIBB COMPANY-13866819

PATIENT
  Age: 60 Year
  Sex: Male

DRUGS (3)
  1. ERBITUX [Suspect]
     Indication: HEPATIC CANCER METASTATIC
     Dosage: GIVEN AGAIN ON 07-AUG-2007
     Route: 042
     Dates: start: 20070802, end: 20070802
  2. BENADRYL [Concomitant]
     Indication: PREMEDICATION
     Route: 042
  3. DECADRON [Concomitant]
     Indication: PREMEDICATION
     Route: 042

REACTIONS (7)
  - CHEST DISCOMFORT [None]
  - CHILLS [None]
  - DYSPNOEA [None]
  - HYPERTENSION [None]
  - INFUSION RELATED REACTION [None]
  - NAUSEA [None]
  - VOMITING [None]
